FAERS Safety Report 24565413 (Version 1)
Quarter: 2024Q4

REPORT INFORMATION
  Report Type: Spontaneous
  Country: US (occurrence: US)
  Receive Date: 20241030
  Receipt Date: 20241030
  Transmission Date: 20250114
  Serious: No
  Sender: BAYER HEALTHCARE LLC
  Company Number: US-BAYER-2024A154848

PATIENT
  Age: 83 Year
  Sex: Male

DRUGS (1)
  1. MIRALAX [Suspect]
     Active Substance: POLYETHYLENE GLYCOL 3350
     Dosage: ONE WHITE CAP EVERY DAY WITH WATER OR JUICE
     Route: 048

REACTIONS (1)
  - Product use issue [Unknown]
